FAERS Safety Report 5385053-9 (Version None)
Quarter: 2007Q3

REPORT INFORMATION
  Report Type: 
  Country: None (occurrence: None)
  Receive Date: 20070712
  Receipt Date: 20070704
  Transmission Date: 20080115
  Serious: Yes (Other)
  Sender: FDA-Public Use
  Company Number: PHBS2007JP11515

PATIENT
  Age: 71 Year
  Sex: Male

DRUGS (3)
  1. NEORAL [Suspect]
     Indication: PEMPHIGUS
     Route: 048
  2. PREDONINE [Concomitant]
     Indication: PEMPHIGUS
  3. BREDININ [Concomitant]
     Indication: PEMPHIGUS

REACTIONS (3)
  - BONE MARROW FAILURE [None]
  - PANCYTOPENIA [None]
  - THROMBOCYTOPENIA [None]
